FAERS Safety Report 9924718 (Version 1)
Quarter: 2014Q1

REPORT INFORMATION
  Report Type: Report from Study
  Country: GB (occurrence: GB)
  Receive Date: 20140226
  Receipt Date: 20140226
  Transmission Date: 20141002
  Serious: No
  Sender: FDA-Public Use
  Company Number: GB-JNJFOC-20140213330

PATIENT
  Age: 56 Year
  Sex: Male

DRUGS (2)
  1. STELARA [Suspect]
     Indication: PSORIASIS
     Route: 058
     Dates: start: 20131030
  2. METHOTREXATE [Concomitant]
     Indication: PSORIASIS
     Route: 065
     Dates: start: 199903

REACTIONS (1)
  - Alanine aminotransferase abnormal [Unknown]
